FAERS Safety Report 14600413 (Version 1)
Quarter: 2018Q1

REPORT INFORMATION
  Report Type: Spontaneous
  Country: CN (occurrence: CN)
  Receive Date: 20180305
  Receipt Date: 20180305
  Transmission Date: 20180509
  Serious: No
  Sender: FDA-Public Use
  Company Number: PHHY2018CN033329

PATIENT
  Age: 4 Year
  Sex: Male
  Weight: 17.7 kg

DRUGS (1)
  1. LAMISIL [Suspect]
     Active Substance: TERBINAFINE HYDROCHLORIDE
     Indication: TINEA CAPITIS
     Dosage: 4 DF, QD
     Route: 048

REACTIONS (2)
  - Overdose [Unknown]
  - Product quality issue [Unknown]
